FAERS Safety Report 15700252 (Version 4)
Quarter: 2020Q1

REPORT INFORMATION
  Report Type: Spontaneous
  Country: US (occurrence: US)
  Receive Date: 20181207
  Receipt Date: 20200115
  Transmission Date: 20200409
  Serious: No
  Sender: FDA-Public Use
  Company Number: US-PFIZER INC-2018502667

PATIENT
  Age: 71 Year
  Sex: Female
  Weight: 52.62 kg

DRUGS (1)
  1. CELECOXIB. [Suspect]
     Active Substance: CELECOXIB
     Dosage: UNK

REACTIONS (2)
  - Therapeutic product effect incomplete [Unknown]
  - Drug hypersensitivity [Unknown]
